FAERS Safety Report 7902412-8 (Version None)
Quarter: 2011Q4

REPORT INFORMATION
  Report Type: 
  Country: None (occurrence: None)
  Receive Date: 20111108
  Receipt Date: 20111028
  Transmission Date: 20120403
  Serious: No
  Sender: FDA-Public Use
  Company Number: US-B.I. PHARMACEUTICALS,INC./RIDGEFIELD-2011-BP-25496BP

PATIENT

DRUGS (1)
  1. MIRAPEX [Suspect]

REACTIONS (1)
  - STOMATITIS [None]
